FAERS Safety Report 21825760 (Version 2)
Quarter: 2023Q1

REPORT INFORMATION
  Report Type: Spontaneous
  Country: US (occurrence: US)
  Receive Date: 20230105
  Receipt Date: 20230130
  Transmission Date: 20230418
  Serious: No
  Sender: FDA-Public Use
  Company Number: US-drreddys-SPO/USA/22/0158483

PATIENT
  Age: 72 Year
  Sex: Female

DRUGS (17)
  1. LENALIDOMIDE [Suspect]
     Active Substance: LENALIDOMIDE
     Indication: Plasma cell myeloma
     Dosage: TAKE 1 CAPSULE BY MOUTH EVERY DAY FOR 3 WEEKS ON AND 1 WEEK OFF
     Route: 048
     Dates: start: 20221108
  2. XGEVA SOL 120MG/1.7ML [Concomitant]
     Indication: Product used for unknown indication
     Dosage: 120MG/1.7ML
  3. TRULICITY SOP 1.5MG/0.5ML [Concomitant]
     Indication: Product used for unknown indication
     Dosage: 1.5MG/0.5ML
  4. ATORVASTATIN [Concomitant]
     Active Substance: ATORVASTATIN
     Indication: Product used for unknown indication
  5. CYCLOBENZAPR TAB 5MG [Concomitant]
     Indication: Product used for unknown indication
  6. DEXAMETHASONE SODIUM PHOSPHATE [Concomitant]
     Active Substance: DEXAMETHASONE SODIUM PHOSPHATE
     Indication: Product used for unknown indication
  7. FISH OIL CAP 1200MG [Concomitant]
     Indication: Product used for unknown indication
  8. GABAPENTIN CAP 100MG [Concomitant]
     Indication: Product used for unknown indication
  9. GLIPIZIDE TAB 5MG [Concomitant]
     Indication: Product used for unknown indication
  10. LANTUS SOL 100UNIT/ML [Concomitant]
     Indication: Product used for unknown indication
     Dosage: 100UNIT/ML
  11. LISINOPRIL-H TAB 20-25MG [Concomitant]
     Indication: Product used for unknown indication
     Dosage: 20-25MG
  12. METFORMIN [Concomitant]
     Active Substance: METFORMIN HYDROCHLORIDE
     Indication: Product used for unknown indication
  13. M VE FREE UL TAB 40-5-3.3 [Concomitant]
     Indication: Product used for unknown indication
     Dosage: 40-5-3.3
  14. MULTIVITAMIN TAB [Concomitant]
     Indication: Product used for unknown indication
  15. OMEPRAZOLE [Concomitant]
     Active Substance: OMEPRAZOLE
     Indication: Product used for unknown indication
  16. ONDANSETRON [Concomitant]
     Active Substance: ONDANSETRON
     Indication: Product used for unknown indication
  17. PROCHLORPERA TAB 5MG [Concomitant]
     Indication: Product used for unknown indication

REACTIONS (18)
  - Peripheral swelling [Unknown]
  - Gastrooesophageal reflux disease [Unknown]
  - Taste disorder [Unknown]
  - Hunger [Unknown]
  - Haemoglobin decreased [Unknown]
  - Confusional state [Unknown]
  - Body temperature abnormal [Unknown]
  - Muscle spasms [Unknown]
  - Infection [Unknown]
  - Dysgeusia [Unknown]
  - Nasopharyngitis [Unknown]
  - Dehydration [Unknown]
  - Upper respiratory tract infection [Unknown]
  - Diarrhoea [Unknown]
  - Fatigue [Not Recovered/Not Resolved]
  - Decreased appetite [Not Recovered/Not Resolved]
  - Weight decreased [Not Recovered/Not Resolved]
  - Product dose omission issue [Unknown]
